FAERS Safety Report 5229179-9 (Version None)
Quarter: 2007Q1

REPORT INFORMATION
  Report Type: 
  Country: None (occurrence: None)
  Receive Date: 20070205
  Receipt Date: 20070126
  Transmission Date: 20070707
  Serious: Yes (Disabling)
  Sender: FDA-Public Use
  Company Number: CA-BOEHRINGER INGELHEIM GMBH, GERMANY-2007-CN-00061CN

PATIENT
  Sex: Female
  Weight: 65.5 kg

DRUGS (1)
  1. MICARDIS [Suspect]
     Dates: end: 20070117

REACTIONS (4)
  - ACTIVITIES OF DAILY LIVING IMPAIRED [None]
  - APATHY [None]
  - ASTHENIA [None]
  - DISTURBANCE IN ATTENTION [None]
